FAERS Safety Report 5358380-9 (Version None)
Quarter: 2007Q2

REPORT INFORMATION
  Report Type: 
  Country: None (occurrence: None)
  Receive Date: 20070530
  Receipt Date: 20070227
  Transmission Date: 20071010
  Serious: Yes (Other)
  Sender: FDA-Public Use
  Company Number: US200601000834

PATIENT
  Age: 40 Year
  Sex: Female
  Weight: 117.9 kg

DRUGS (2)
  1. ZYPREXA [Suspect]
     Indication: PAIN MANAGEMENT
     Dates: start: 20000301, end: 20010401
  2. RISPERDAL [Concomitant]

REACTIONS (2)
  - DIABETES MELLITUS NON-INSULIN-DEPENDENT [None]
  - WEIGHT INCREASED [None]
